FAERS Safety Report 4765696-3 (Version None)
Quarter: 2005Q3

REPORT INFORMATION
  Report Type: 
  Country: None (occurrence: None)
  Receive Date: 20050906
  Receipt Date: 20050823
  Transmission Date: 20060218
  Serious: Yes (Hospitalization)
  Sender: FDA-Public Use
  Company Number: 2005FR-00266

PATIENT
  Age: 43 Year
  Sex: Male

DRUGS (7)
  1. FLUOXETINE [Suspect]
     Dosage: 600MG, ORAL
     Route: 048
  2. ASPIRIN [Suspect]
     Dosage: 7.5 G
  3. AMLODIPINE [Concomitant]
  4. FOLIC ACID [Concomitant]
  5. ACETAMINOPHEN [Concomitant]
  6. CITALOPRAM [Concomitant]
  7. PERINDOPRIL [Concomitant]

REACTIONS (8)
  - HAEMODYNAMIC INSTABILITY [None]
  - HYPOKALAEMIA [None]
  - HYPOTENSION [None]
  - INTENTIONAL MISUSE [None]
  - METABOLIC ACIDOSIS [None]
  - OVERDOSE [None]
  - RENAL FAILURE [None]
  - URINARY RETENTION [None]
